FAERS Safety Report 7317365-3 (Version None)
Quarter: 2011Q1

REPORT INFORMATION
  Report Type: 
  Country: None (occurrence: None)
  Receive Date: 20110226
  Receipt Date: 20101028
  Transmission Date: 20110831
  Serious: No
  Sender: FDA-Public Use
  Company Number: US-ALLERGAN-1013907US

PATIENT
  Age: 40 Year
  Sex: Female

DRUGS (2)
  1. BOTOX COSMETIC [Suspect]
     Indication: SKIN WRINKLING
     Dosage: 60 UNITS, SINGLE
     Dates: start: 20100928, end: 20100928
  2. BOTOX COSMETIC [Suspect]
     Dosage: UNK
     Dates: start: 20101001, end: 20101001

REACTIONS (2)
  - EYELID SENSORY DISORDER [None]
  - THERAPEUTIC RESPONSE DECREASED [None]
